FAERS Safety Report 19254851 (Version 1)
Quarter: 2021Q2

REPORT INFORMATION
  Report Type: Spontaneous
  Country: US (occurrence: US)
  Receive Date: 20210513
  Receipt Date: 20210513
  Transmission Date: 20210717
  Serious: No
  Sender: FDA-Public Use
  Company Number: US-UCBSA-2020048867

PATIENT
  Sex: Female

DRUGS (1)
  1. CIMZIA [Suspect]
     Active Substance: CERTOLIZUMAB PEGOL
     Indication: PSORIASIS

REACTIONS (4)
  - Drug ineffective [Unknown]
  - Psoriatic arthropathy [Unknown]
  - Maternal exposure during pregnancy [Unknown]
  - Hypersensitivity [Unknown]
